FAERS Safety Report 6330012-2 (Version None)
Quarter: 2009Q3

REPORT INFORMATION
  Report Type: 
  Country: None (occurrence: None)
  Receive Date: 20090825
  Receipt Date: 20090825
  Transmission Date: 20100115
  Serious: Yes (Hospitalization, Disabling)
  Sender: FDA-Public Use
  Company Number: 2009TJ0184

PATIENT
  Age: 69 Year
  Sex: Male
  Weight: 89.9029 kg

DRUGS (10)
  1. EPINEPHRINE [Suspect]
     Indication: HYPOTENSION
     Dosage: 2 MG, PER MINUTE125MCG ONCE THEN 250MCG, ONCE, ONE DAY
     Dates: start: 20090731, end: 20090802
  2. CLEVIDIPINE (CLEVIDIPINE) [Suspect]
     Dates: start: 20090731, end: 20090731
  3. NICARDIPINE HCL [Suspect]
     Indication: HYPERTENSION
     Dosage: 1200 UG ONCE THEN 2 MG/HOUR, ONE DAY, INTRAVENOUS BOLUS THEN DRIP
     Route: 040
     Dates: start: 20090731, end: 20090731
  4. PHENYLEPHRINE (PHENYLEPHRINE) [Suspect]
     Indication: HYPOTENSION
     Dosage: 50 MCG, PER MINUTE, INTRAVENOUS DRIP
     Route: 041
     Dates: start: 20090731, end: 20090731
  5. FENTANYL-100 [Suspect]
     Indication: ANAESTHESIA
     Dosage: 500 MCG TIMES 2 THEN 250 MCG ONCE, ONE DAY, INTRAVENOUS BOLUS
     Route: 040
     Dates: start: 20090731, end: 20090731
  6. MIDAZOLAM HCL [Suspect]
     Indication: ANAESTHESIA
     Dosage: 10MG ONCE THEN 3 MG ONCE, ONE DAY, INTRAVENOUS BOLUS
     Route: 040
     Dates: start: 20090731, end: 20090731
  7. HYDROMORPHONE HCL [Suspect]
     Indication: ANALGESIC THERAPY
     Dosage: 2 MG, AS NEEDED, INTRAVENOUS BOLUS
     Route: 040
     Dates: start: 20090801, end: 20090801
  8. INSULIN (INSULIN) [Concomitant]
  9. CALCIUM CHLORIDE [Concomitant]
  10. SODIUM BICARBONATE IN PLASTIC CONTAINER [Concomitant]

REACTIONS (8)
  - CEREBRAL VENTRICLE DILATATION [None]
  - CONFUSIONAL STATE [None]
  - DELIRIUM [None]
  - ENCEPHALOPATHY [None]
  - MENTAL STATUS CHANGES [None]
  - POST PROCEDURAL COMPLICATION [None]
  - SPEECH DISORDER [None]
  - UNRESPONSIVE TO STIMULI [None]
